FAERS Safety Report 11097600 (Version 1)
Quarter: 2015Q2

REPORT INFORMATION
  Report Type: Spontaneous
  Country: GB (occurrence: GB)
  Receive Date: 20150507
  Receipt Date: 20150507
  Transmission Date: 20150821
  Serious: Yes (Other)
  Sender: FDA-Public Use
  Company Number: GB-TEVA-560337ACC

PATIENT
  Age: 60 Year
  Sex: Female
  Weight: 66 kg

DRUGS (14)
  1. CALCIUM CARBONATE. [Concomitant]
     Active Substance: CALCIUM CARBONATE
     Dosage: 2 DOSAGE FORMS DAILY; TAKE ONE TWICE DAILY
     Dates: start: 20140307
  2. ESTRADIOL. [Concomitant]
     Active Substance: ESTRADIOL
     Dosage: 1 DOSAGE FORMS DAILY; INSERT ONE PESSARY INTO THE VAGINA EACH EVENING
     Dates: start: 20150409
  3. PANTOPRAZOLE [Concomitant]
     Active Substance: PANTOPRAZOLE SODIUM
     Dosage: 1 DOSAGE FORMS DAILY;
     Dates: start: 20150122, end: 20150409
  4. ZOLEDRONIC ACID [Concomitant]
     Active Substance: ZOLEDRONIC ACID
     Dosage: FOR ISSUE BY HOSPITAL ONLY
     Dates: start: 20140403
  5. CLARITHROMYCIN. [Suspect]
     Active Substance: CLARITHROMYCIN
     Indication: HELICOBACTER INFECTION
     Route: 065
     Dates: start: 20150423
  6. SCHERIPROCT [Concomitant]
     Active Substance: DIBUCAINE HYDROCHLORIDE\PREDNISOLONE
     Dosage: 2 DOSAGE FORMS DAILY; APPLY TWICE DAILY
     Dates: start: 20150409, end: 20150416
  7. CO-MAGALDROX [Concomitant]
     Dosage: 40 ML DAILY; 2X5ML SPOON 4 TIMES/DAY
     Dates: start: 20150409, end: 20150421
  8. LANSOPRAZOLE. [Concomitant]
     Active Substance: LANSOPRAZOLE
     Dosage: 2 DOSAGE FORMS DAILY;
     Dates: start: 20150413
  9. FERROUS SULFATE [Concomitant]
     Active Substance: FERROUS SULFATE\FERROUS SULFATE, DRIED
     Dosage: 2 DOSAGE FORMS DAILY; TAKE ONE 2 TIMES/DAY
     Dates: start: 20150330
  10. TOCILIZUMAB [Concomitant]
     Active Substance: TOCILIZUMAB
     Dosage: ISSUED BY HOSPITAL
     Dates: start: 20121130
  11. AMOXICILLIN. [Concomitant]
     Active Substance: AMOXICILLIN
     Dosage: 4 DOSAGE FORMS DAILY;
     Dates: start: 20150413, end: 20150420
  12. FENBID [Concomitant]
     Active Substance: IBUPROFEN
     Dosage: APPLY UP TO FOUR TIMES DAILY WHEN REQUIRED
     Dates: start: 20150303, end: 20150313
  13. AMLODIPINE [Concomitant]
     Active Substance: AMLODIPINE BESYLATE
     Dosage: 1 DOSAGE FORMS DAILY;
     Dates: start: 20140725
  14. PARACETAMOL [Concomitant]
     Active Substance: ACETAMINOPHEN
     Dosage: TAKE 1 OR 2 TABLETS FOUR TIMES DAILY AS NEEDED
     Dates: start: 20140214

REACTIONS (1)
  - Arrhythmia [Recovered/Resolved]

NARRATIVE: CASE EVENT DATE: 20150423
